FAERS Safety Report 15208848 (Version 1)
Quarter: 2018Q3

REPORT INFORMATION
  Report Type: Spontaneous
  Country: US (occurrence: US)
  Receive Date: 20180629
  Receipt Date: 20180629
  Transmission Date: 20181010
  Serious: Yes (Other)
  Sender: FDA-Public Use
  Company Number: None

PATIENT
  Age: 49 Year
  Sex: Female
  Weight: 44.1 kg

DRUGS (9)
  1. SENNA [Concomitant]
     Active Substance: SENNA LEAF\SENNOSIDES\SENNOSIDES A AND B
  2. TRAZEDONE [Concomitant]
  3. NEXIUM [Concomitant]
     Active Substance: ESOMEPRAZOLE MAGNESIUM
  4. MEDROL DOSE PACK [Concomitant]
     Active Substance: METHYLPREDNISOLONE
  5. HYDROXYZINE [Concomitant]
     Active Substance: HYDROXYZINE HYDROCHLORIDE
  6. XOLAIR [Concomitant]
     Active Substance: OMALIZUMAB
  7. KLONOPIN [Concomitant]
     Active Substance: CLONAZEPAM
  8. GAMMAGARD [Suspect]
     Active Substance: HUMAN IMMUNOGLOBULIN G
     Indication: PRODUCT USED FOR UNKNOWN INDICATION
     Dosage: ?          QUANTITY:2 OUNCE(S);OTHER FREQUENCY:INFUSION IV;?
     Route: 042
  9. SINGULAIR [Concomitant]
     Active Substance: MONTELUKAST SODIUM

REACTIONS (10)
  - Flushing [None]
  - Drug hypersensitivity [None]
  - Abdominal pain upper [None]
  - Face oedema [None]
  - Palpitations [None]
  - Muscle spasms [None]
  - Pyrexia [None]
  - Rash erythematous [None]
  - Hyperhidrosis [None]
  - Paraesthesia [None]

NARRATIVE: CASE EVENT DATE: 20180618
